FAERS Safety Report 25550228 (Version 1)
Quarter: 2025Q3

REPORT INFORMATION
  Report Type: Spontaneous
  Country: BR (occurrence: BR)
  Receive Date: 20250714
  Receipt Date: 20250714
  Transmission Date: 20251021
  Serious: Yes (Death)
  Sender: NOVARTIS
  Company Number: BR-002147023-NVSC2025BR111184

PATIENT
  Sex: Female

DRUGS (1)
  1. KISQALI [Suspect]
     Active Substance: RIBOCICLIB SUCCINATE
     Indication: Breast cancer
     Route: 065
     Dates: start: 20240701

REACTIONS (7)
  - Metabolic acidosis [Fatal]
  - Acute kidney injury [Fatal]
  - Subdural haemorrhage [Fatal]
  - Craniocerebral injury [Fatal]
  - Ventricular fibrillation [Fatal]
  - Breast cancer [Fatal]
  - Metastases to lung [Fatal]
